FAERS Safety Report 14710564 (Version 1)
Quarter: 2018Q2

REPORT INFORMATION
  Report Type: Spontaneous
  Country: US (occurrence: US)
  Receive Date: 20180403
  Receipt Date: 20180403
  Transmission Date: 20180711
  Serious: No
  Sender: FDA-Public Use
  Company Number: US-ROCHE-2056983

PATIENT
  Sex: Female

DRUGS (7)
  1. LISINOPRIL. [Concomitant]
     Active Substance: LISINOPRIL
     Route: 065
  2. ERIVEDGE [Suspect]
     Active Substance: VISMODEGIB
     Dosage: 1 CAPSULE
     Route: 048
     Dates: start: 20180115
  3. ASPIRIN. [Concomitant]
     Active Substance: ASPIRIN
     Dosage: 81
     Route: 065
  4. CRANBERRY. [Concomitant]
     Active Substance: CRANBERRY
     Route: 065
  5. ERIVEDGE [Suspect]
     Active Substance: VISMODEGIB
     Indication: NASAL CAVITY CANCER
     Dosage: 1 CAPSULE
     Route: 048
  6. DESONIDE. [Concomitant]
     Active Substance: DESONIDE
     Dosage: DESONIDE CRE
     Route: 065
  7. NOVOLIN [Concomitant]
     Active Substance: INSULIN HUMAN
     Dosage: 70/30 SUSPENSION
     Route: 065

REACTIONS (4)
  - Intentional product use issue [Unknown]
  - Decreased appetite [Unknown]
  - Off label use [Unknown]
  - Urinary incontinence [Unknown]
